FAERS Safety Report 7227742-7 (Version None)
Quarter: 2011Q1

REPORT INFORMATION
  Report Type: 
  Country: None (occurrence: None)
  Receive Date: 20110114
  Receipt Date: 20101102
  Transmission Date: 20110831
  Serious: Yes (Other)
  Sender: FDA-Public Use
  Company Number: PHHY2010JP66724

PATIENT
  Sex: Female
  Weight: 64 kg

DRUGS (3)
  1. LENDORMIN [Concomitant]
     Dosage: 0.25 MG
     Route: 048
     Dates: start: 20090930, end: 20100228
  2. RED CELLS MAP [Concomitant]
     Dosage: 4 UNITS EVERY 2 WEEKS
  3. EXJADE [Suspect]
     Indication: IRON OVERLOAD
     Dosage: 500 MG, DAILY
     Route: 048
     Dates: start: 20090930, end: 20091013

REACTIONS (3)
  - ERYTHEMA MULTIFORME [None]
  - PRURITUS [None]
  - PYREXIA [None]
